FAERS Safety Report 9138881 (Version 1)
Quarter: 2013Q1

REPORT INFORMATION
  Report Type: Spontaneous
  Country: FR (occurrence: FR)
  Receive Date: 20130305
  Receipt Date: 20130305
  Transmission Date: 20140127
  Serious: Yes (Other)
  Sender: FDA-Public Use
  Company Number: FR-MYLANLABS-2013S1003955

PATIENT
  Age: 30 Year
  Sex: Female

DRUGS (9)
  1. MORPHINE [Suspect]
     Indication: SPINAL ANAESTHESIA
     Dosage: 50 MICROG
     Route: 037
  2. BUPIVACAINE [Concomitant]
     Indication: SPINAL ANAESTHESIA
     Dosage: 10MG OF 0.5%
     Route: 037
  3. SUFENTANIL [Concomitant]
     Indication: SPINAL ANAESTHESIA
     Dosage: 5 MICROG
     Route: 037
  4. EPHEDRINE [Concomitant]
     Dosage: 30MG
     Route: 042
  5. PHENYLEPHRINE [Concomitant]
     Dosage: 150 MICROG
     Route: 042
  6. AMPICILLIN [Concomitant]
     Dosage: 2G
     Route: 065
  7. OXYTOCIN [Concomitant]
     Dosage: 5 IU
     Route: 065
  8. PARACETAMOL [Concomitant]
     Indication: ANALGESIC THERAPY
     Dosage: 1G
     Route: 042
  9. TRAMADOL [Concomitant]
     Indication: ANALGESIC THERAPY
     Dosage: 100MG
     Route: 042

REACTIONS (6)
  - Hypothermia [Recovered/Resolved]
  - Nausea [Unknown]
  - Somnolence [Unknown]
  - Feeling hot [Recovered/Resolved]
  - Vomiting [Unknown]
  - Oxygen saturation decreased [Unknown]
